FAERS Safety Report 23144893 (Version 1)
Quarter: 2023Q4

REPORT INFORMATION
  Report Type: Spontaneous
  Country: NO (occurrence: NO)
  Receive Date: 20231103
  Receipt Date: 20231103
  Transmission Date: 20240110
  Serious: Yes (Hospitalization)
  Sender: FDA-Public Use
  Company Number: NO-CELLTRION HEALTHCARE HUNGARY KFT-2023NO012097

PATIENT
  Sex: Female

DRUGS (14)
  1. PREDNISOLONE [Suspect]
     Active Substance: PREDNISOLONE
     Indication: Gene mutation
     Dosage: UNK
     Route: 065
  2. MYCOPHENOLATE MOFETIL [Suspect]
     Active Substance: MYCOPHENOLATE MOFETIL
     Indication: Gene mutation
     Dosage: UNK
     Route: 065
  3. ADALIMUMAB [Suspect]
     Active Substance: ADALIMUMAB\ISOPROPYL ALCOHOL
     Indication: Gene mutation
     Dosage: UNK
     Route: 065
  4. CYCLOSPORINE [Suspect]
     Active Substance: CYCLOSPORINE
     Indication: Gene mutation
     Dosage: 3 MG/KG
     Route: 065
  5. METHOTREXATE [Suspect]
     Active Substance: METHOTREXATE
     Indication: Gene mutation
     Dosage: 7.5 MG, 1 DOSE WEEKLY
     Route: 065
  6. AZATHIOPRINE [Suspect]
     Active Substance: AZATHIOPRINE
     Indication: Gene mutation
     Dosage: UNK
     Route: 065
  7. AZATHIOPRINE [Suspect]
     Active Substance: AZATHIOPRINE
     Dosage: 2 MG/KG
     Route: 065
  8. COLCHICINE [Suspect]
     Active Substance: COLCHICINE
     Indication: Gene mutation
     Dosage: UNK
     Route: 065
  9. THALIDOMIDE [Suspect]
     Active Substance: THALIDOMIDE
     Indication: Gene mutation
     Dosage: UNK
     Route: 065
  10. INFLIXIMAB [Suspect]
     Active Substance: INFLIXIMAB
     Indication: Gene mutation
     Dosage: 5 MG/KG WEEKS 0, 2, 6, 8 AND THEN EVERY EIGHT WEEKS
     Route: 042
  11. INFLIXIMAB [Suspect]
     Active Substance: INFLIXIMAB
     Indication: Behcet^s syndrome
  12. TOCILIZUMAB [Suspect]
     Active Substance: TOCILIZUMAB
     Indication: Gene mutation
     Dosage: UNK
     Route: 065
  13. ANAKINRA [Suspect]
     Active Substance: ANAKINRA
     Indication: Gene mutation
     Dosage: UNK
     Route: 065
  14. INTERFERON ALFA NOS [Suspect]
     Active Substance: INTERFERON ALFA-2A OR INTERFERON ALFA-2B
     Indication: Gene mutation
     Dosage: UNK
     Route: 065

REACTIONS (6)
  - Drug ineffective for unapproved indication [Unknown]
  - Off label use [Unknown]
  - Drug specific antibody present [Unknown]
  - Adverse drug reaction [Unknown]
  - Intentional product use issue [Unknown]
  - Hypersensitivity [Unknown]
